FAERS Safety Report 4447288-9 (Version None)
Quarter: 2004Q3

REPORT INFORMATION
  Report Type: 
  Country: None (occurrence: None)
  Receive Date: 20040813
  Receipt Date: 20040714
  Transmission Date: 20050211
  Serious: No
  Sender: FDA-Public Use
  Company Number: S04-USA-04078-01

PATIENT
  Age: 86 Year
  Sex: Male

DRUGS (7)
  1. NAMENDA [Suspect]
     Indication: DEMENTIA
     Dosage: 10 MG BID PO
     Route: 048
     Dates: start: 20040623, end: 20040712
  2. NAMENDA [Suspect]
     Indication: DEMENTIA
     Dosage: 5 MG QD PO
     Route: 048
     Dates: start: 20040602, end: 20040608
  3. NAMENDA [Suspect]
     Indication: DEMENTIA
     Dosage: 10 MG QD PO
     Route: 048
     Dates: start: 20040609, end: 20040615
  4. NAMENDA [Suspect]
     Indication: DEMENTIA
     Dosage: 15 MG QD PO
     Route: 048
     Dates: start: 20040616, end: 20040622
  5. HUMIBID (GUAIFENESIN) [Concomitant]
  6. CLONAZEPAM [Concomitant]
  7. ALBUTEROL [Concomitant]

REACTIONS (2)
  - DYSPNOEA [None]
  - MUSCLE SPASMS [None]
